FAERS Safety Report 22023373 (Version 1)
Quarter: 2023Q1

REPORT INFORMATION
  Report Type: Spontaneous
  Country: US (occurrence: US)
  Receive Date: 20230223
  Receipt Date: 20230223
  Transmission Date: 20230418
  Serious: No
  Sender: FDA-Public Use
  Company Number: US-VIIV HEALTHCARE LIMITED-US2023AMR025597

PATIENT
  Age: 63 Year
  Sex: Male

DRUGS (18)
  1. RILPIVIRINE [Suspect]
     Active Substance: RILPIVIRINE
     Indication: HIV infection
     Dosage: UNK UNK, Z, 600 MG/ 900 MG IM EVERY MONTH X2 THEN EVERY 2 MONTHS THEREAFTER
     Route: 030
     Dates: start: 20221025, end: 20230214
  2. RILPIVIRINE [Suspect]
     Active Substance: RILPIVIRINE
     Route: 065
  3. RILPIVIRINE [Suspect]
     Active Substance: RILPIVIRINE
     Dosage: UNK UNK, Z, 600 MG/ 900 MG IM EVERY MONTH X2 THEN EVERY 2 MONTHS THEREAFTER
     Route: 030
     Dates: start: 20221125, end: 20230214
  4. RILPIVIRINE [Suspect]
     Active Substance: RILPIVIRINE
     Dosage: SEPARATE DOSAGE REGIMEN
     Route: 065
  5. RILPIVIRINE [Suspect]
     Active Substance: RILPIVIRINE
     Dosage: UNK UNK, Z, 600 MG/ 900 MG IM EVERY MONTH X2 THEN EVERY 2 MONTHS THEREAFTER
     Route: 030
     Dates: start: 20230125
  6. RILPIVIRINE [Suspect]
     Active Substance: RILPIVIRINE
     Route: 065
  7. CABOTEGRAVIR [Suspect]
     Active Substance: CABOTEGRAVIR
     Indication: Acquired immunodeficiency syndrome
     Dosage: UNK UNK, Z, 600 MG/ 900 MG IM EVERY MONTH X2 THEN EVERY 2 MONTHS THEREAFTER
     Route: 030
     Dates: start: 20221025, end: 20230214
  8. CABOTEGRAVIR [Suspect]
     Active Substance: CABOTEGRAVIR
     Route: 065
  9. CABOTEGRAVIR [Suspect]
     Active Substance: CABOTEGRAVIR
     Dosage: UNK UNK, Z, 600 MG/ 900 MG IM EVERY MONTH X2 THEN EVERY 2 MONTHS THEREAFTER
     Route: 030
     Dates: start: 20221125, end: 20230214
  10. CABOTEGRAVIR [Suspect]
     Active Substance: CABOTEGRAVIR
     Dosage: SEPARATE DOSAGE REGIMEN
     Route: 065
  11. CABOTEGRAVIR [Suspect]
     Active Substance: CABOTEGRAVIR
     Dosage: UNK UNK, Z, 600 MG/ 900 MG IM EVERY MONTH X2 THEN EVERY 2 MONTHS THEREAFTER
     Route: 030
     Dates: start: 20230125
  12. CABOTEGRAVIR [Suspect]
     Active Substance: CABOTEGRAVIR
     Route: 065
  13. ACYCLOVIR [Concomitant]
     Active Substance: ACYCLOVIR
     Indication: Product used for unknown indication
     Dosage: 400 MG
     Route: 065
  14. CETIRIZINE [Concomitant]
     Active Substance: CETIRIZINE HYDROCHLORIDE
     Indication: Product used for unknown indication
     Dosage: 10 MG
     Route: 065
  15. CYANOCOBALAMIN [Concomitant]
     Active Substance: CYANOCOBALAMIN
     Indication: Product used for unknown indication
     Dosage: UNK, 1000 MCG
     Route: 065
  16. FAMOTIDINE [Concomitant]
     Active Substance: FAMOTIDINE
     Indication: Product used for unknown indication
     Dosage: 20 MG
     Route: 065
  17. NITROGLYCERIN [Concomitant]
     Active Substance: NITROGLYCERIN
     Indication: Product used for unknown indication
     Dosage: 0.4 MG
     Route: 065
  18. VITAMIN D2 [Concomitant]
     Active Substance: ERGOCALCIFEROL
     Indication: Product used for unknown indication
     Dosage: UNK, 50.000 UNITS
     Route: 065

REACTIONS (1)
  - Viral load increased [Unknown]

NARRATIVE: CASE EVENT DATE: 20230214
